FAERS Safety Report 9807920 (Version 1)
Quarter: 2014Q1

REPORT INFORMATION
  Report Type: Spontaneous
  Country: IT (occurrence: IT)
  Receive Date: 20140110
  Receipt Date: 20140110
  Transmission Date: 20141002
  Serious: Yes (Hospitalization)
  Sender: FDA-Public Use
  Company Number: IT-MYLANLABS-113AS20130777

PATIENT
  Age: 85 Year
  Sex: Male

DRUGS (2)
  1. LEVOFLOXACIN [Suspect]
     Indication: HYPERPYREXIA
     Dosage: 500 MG DAILY
     Route: 048
     Dates: start: 20130503, end: 20130508
  2. XELODA [Suspect]
     Indication: ADENOCARCINOMA OF COLON
     Dosage: 500 MG DAILY
     Route: 048
     Dates: start: 20121001, end: 20130401

REACTIONS (3)
  - Asthenia [Recovering/Resolving]
  - Pulmonary oedema [Recovering/Resolving]
  - Renal failure [Recovering/Resolving]
